FAERS Safety Report 4886056-0 (Version None)
Quarter: 2006Q1

REPORT INFORMATION
  Report Type: 
  Country: None (occurrence: None)
  Receive Date: 20060120
  Receipt Date: 20051227
  Transmission Date: 20060701
  Serious: Yes (Other)
  Sender: FDA-Public Use
  Company Number: JP-BRISTOL-MYERS SQUIBB COMPANY-13237268

PATIENT

DRUGS (4)
  1. IFOMIDE [Suspect]
     Indication: MEDULLOBLASTOMA
     Route: 042
  2. PARAPLATIN [Suspect]
     Indication: MEDULLOBLASTOMA
     Route: 042
  3. LASTET [Suspect]
     Indication: MEDULLOBLASTOMA
     Route: 042
  4. NEUPOGEN [Concomitant]

REACTIONS (2)
  - HAEMATOTOXICITY [None]
  - SEPSIS [None]
